FAERS Safety Report 15686338 (Version 1)
Quarter: 2018Q4

REPORT INFORMATION
  Report Type: Spontaneous
  Country: SI (occurrence: SI)
  Receive Date: 20181204
  Receipt Date: 20181204
  Transmission Date: 20190205
  Serious: Yes (Other)
  Sender: FDA-Public Use
  Company Number: SI-JNJFOC-20181141829

PATIENT
  Age: 60 Year
  Sex: Female

DRUGS (7)
  1. NEXIUM [Concomitant]
     Active Substance: ESOMEPRAZOLE MAGNESIUM
     Route: 065
  2. CAELYX [Suspect]
     Active Substance: DOXORUBICIN HYDROCHLORIDE
     Indication: FALLOPIAN TUBE CANCER
     Route: 042
     Dates: start: 20181115, end: 20181115
  3. LACTECON [Concomitant]
     Route: 065
  4. REGLAN [Concomitant]
     Active Substance: METOCLOPRAMIDE HYDROCHLORIDE
     Route: 065
  5. MILGAMMA [Concomitant]
     Active Substance: VITAMIN B
     Route: 065
  6. HELEX [Concomitant]
     Active Substance: ALPRAZOLAM
     Route: 065
  7. SPASMEX [Concomitant]
     Route: 065

REACTIONS (5)
  - Acute respiratory failure [Recovered/Resolved]
  - Hot flush [Recovered/Resolved]
  - Product use in unapproved indication [Unknown]
  - Off label use [Unknown]
  - Flushing [Recovered/Resolved]

NARRATIVE: CASE EVENT DATE: 20181115
